FAERS Safety Report 4751434-7 (Version None)
Quarter: 2005Q3

REPORT INFORMATION
  Report Type: 
  Country: None (occurrence: None)
  Receive Date: 20050824
  Receipt Date: 20031029
  Transmission Date: 20060218
  Serious: Yes (Other)
  Sender: FDA-Public Use
  Company Number: 2003AP03930

PATIENT
  Age: 40 Year
  Sex: Male
  Weight: 64 kg

DRUGS (27)
  1. DIPRIVAN [Suspect]
     Indication: SEDATION
     Route: 042
  2. DIPRIVAN [Suspect]
     Indication: ANAESTHESIA
     Route: 042
  3. DIPRIVAN [Suspect]
     Route: 042
  4. DIPRIVAN [Suspect]
     Route: 042
  5. DIPRIVAN [Suspect]
     Route: 041
  6. DIPRIVAN [Suspect]
     Route: 041
  7. DIPRIVAN [Suspect]
     Dosage: 120-300 MG/HR CONTINUOUSLY
     Route: 041
  8. DIPRIVAN [Suspect]
     Dosage: 120-300 MG/HR CONTINUOUSLY
     Route: 041
  9. DIPRIVAN [Suspect]
     Route: 041
  10. DIPRIVAN [Suspect]
     Route: 041
  11. DIPRIVAN [Suspect]
     Dosage: 150-250 MG HOUR
     Route: 041
  12. DIPRIVAN [Suspect]
     Dosage: 150-250 MG HOUR
     Route: 041
  13. HALOPERIDOL [Concomitant]
     Route: 041
  14. PYRIDOSTIGMINE BROMIDE [Concomitant]
     Indication: MUSCULAR WEAKNESS
     Route: 048
  15. RANITIDINE HCL [Concomitant]
     Indication: PREMEDICATION
     Route: 048
  16. FENTANYL [Concomitant]
     Indication: ANAESTHESIA
     Route: 042
  17. VECURONIUM [Concomitant]
     Indication: ANAESTHESIA
     Route: 042
  18. OXYGEN [Concomitant]
     Indication: MAINTENANCE OF ANAESTHESIA
     Route: 055
  19. NITROUS OXIDE [Concomitant]
     Indication: MAINTENANCE OF ANAESTHESIA
     Route: 055
  20. SEVOFLURANE [Concomitant]
     Indication: MAINTENANCE OF ANAESTHESIA
     Dosage: 1.5 - 3%
     Route: 055
  21. ATROPINE [Concomitant]
  22. EDROPHONIUM CHLORIDE [Concomitant]
  23. NEOSTIGMINE [Concomitant]
     Route: 030
  24. MIDAZOLAM HCL [Concomitant]
     Route: 042
  25. BIPERIDEN HYDROCHLORIDE TAB [Concomitant]
     Route: 042
  26. DIAZEPAM [Concomitant]
     Dosage: SLOW
     Route: 041
  27. DIAZEPAM [Concomitant]
     Dosage: CONTINUOUS
     Route: 041

REACTIONS (12)
  - ASTHENIA [None]
  - DYSKINESIA [None]
  - DYSPHONIA [None]
  - DYSPNOEA [None]
  - EPILEPSY [None]
  - HYPOVENTILATION [None]
  - INSOMNIA [None]
  - MUSCLE TWITCHING [None]
  - MYOCLONUS [None]
  - OPISTHOTONUS [None]
  - RESPIRATORY ACIDOSIS [None]
  - TACHYPNOEA [None]
